FAERS Safety Report 14625555 (Version 1)
Quarter: 2018Q1

REPORT INFORMATION
  Report Type: Spontaneous
  Country: GB (occurrence: GB)
  Receive Date: 20180312
  Receipt Date: 20180312
  Transmission Date: 20180509
  Serious: Yes (Hospitalization, Other)
  Sender: FDA-Public Use
  Company Number: GB-TEVA-2018-GB-867989

PATIENT
  Age: 12 Year
  Sex: Male
  Weight: 45 kg

DRUGS (1)
  1. AMOXICILLIN. [Suspect]
     Active Substance: AMOXICILLIN
     Dosage: 3 DOSAGE FORMS DAILY;
     Route: 048

REACTIONS (1)
  - Otosalpingitis [Unknown]
